FAERS Safety Report 9893154 (Version 2)
Quarter: 2014Q1

REPORT INFORMATION
  Report Type: Spontaneous
  Country: FR (occurrence: FR)
  Receive Date: 20140213
  Receipt Date: 20140301
  Transmission Date: 20141002
  Serious: Yes (Life-Threatening)
  Sender: FDA-Public Use
  Company Number: FR-ASTRAZENECA-2014SE09784

PATIENT
  Age: 50 Year
  Sex: Female

DRUGS (9)
  1. XEROQUEL [Suspect]
     Indication: PSYCHOTIC DISORDER
     Route: 048
     Dates: end: 201312
  2. XEROQUEL [Suspect]
     Indication: PSYCHOTIC DISORDER
     Route: 048
     Dates: start: 20131226, end: 20131231
  3. LYSANXIA [Suspect]
     Route: 048
     Dates: start: 20131226, end: 20131231
  4. DEPAKINE CHRONO [Concomitant]
     Route: 048
     Dates: end: 20131231
  5. DEPAKINE CHRONO [Concomitant]
     Route: 048
     Dates: start: 20140103
  6. CLOPIXOL [Concomitant]
     Route: 048
     Dates: end: 20131231
  7. LEPTICUR [Concomitant]
     Route: 048
     Dates: end: 20131231
  8. FORLAX [Concomitant]
     Route: 048
     Dates: end: 20131231
  9. TRINORDIOL [Concomitant]

REACTIONS (5)
  - Pneumonia aspiration [Recovered/Resolved]
  - Bone marrow myelogram abnormal [Unknown]
  - Coma [Recovered/Resolved]
  - Acute respiratory distress syndrome [Unknown]
  - Thrombocytopenia [Recovered/Resolved]
